FAERS Safety Report 23367216 (Version 1)
Quarter: 2024Q1

REPORT INFORMATION
  Report Type: Spontaneous
  Country: SE (occurrence: SE)
  Receive Date: 20240104
  Receipt Date: 20240104
  Transmission Date: 20240409
  Serious: Yes (Hospitalization)
  Sender: FDA-Public Use
  Company Number: None

PATIENT
  Age: 73 Year
  Sex: Male
  Weight: 70 kg

DRUGS (15)
  1. BOSULIF [Suspect]
     Active Substance: BOSUTINIB MONOHYDRATE
     Indication: Chronic myeloid leukaemia
     Dosage: 500 MG, 1X/DAY
     Route: 048
     Dates: start: 20230329, end: 20231214
  2. DOXYFERM [DOXYCYCLINE] [Concomitant]
     Dosage: 200 MG, DAILY
     Dates: start: 20231213, end: 20231213
  3. MINIDERM [GLYCEROL] [Concomitant]
     Dosage: UNK, DAILY
     Dates: start: 20231209
  4. BISOPROLOL [Concomitant]
     Active Substance: BISOPROLOL\BISOPROLOL FUMARATE
     Dosage: 1.25 MG, 1X/DAY
  5. BENSYLPENICILLIN MEDA [Concomitant]
     Dosage: UNK
     Dates: start: 20231206, end: 20231212
  6. CYANOCOBALAMIN [Concomitant]
     Active Substance: CYANOCOBALAMIN
     Dosage: 1 MG, 1X/DAY
  7. INNOHEP [Concomitant]
     Active Substance: TINZAPARIN SODIUM
     Dosage: UNK
     Dates: start: 20231209
  8. FUROSEMIDE [Concomitant]
     Active Substance: FUROSEMIDE
     Dosage: 40 MG, 1X/DAY
  9. LOPERAMIDE HYDROCHLORIDE [Concomitant]
     Active Substance: LOPERAMIDE HYDROCHLORIDE
     Dosage: 2 MG, AS NEEDED
     Dates: start: 20231206
  10. ACETAMINOPHEN [Concomitant]
     Active Substance: ACETAMINOPHEN
     Dosage: 1000 MG, AS NEEDED
     Dates: start: 20231206
  11. CANDESARTAN CILEXETIL\HYDROCHLOROTHIAZIDE [Concomitant]
     Active Substance: CANDESARTAN CILEXETIL\HYDROCHLOROTHIAZIDE
     Dosage: 1 DF, 1X/DAY
     Dates: start: 20231210
  12. NATRIUMKLORID BRAUN [Concomitant]
     Dosage: 3 DF, 4X/DAY
     Dates: start: 20231209
  13. NATRIUMKLORID BRAUN [Concomitant]
     Dosage: 3 DF, AS NEEDED
     Dates: start: 20231208, end: 20231209
  14. AMLODIPINE BESYLATE [Concomitant]
     Active Substance: AMLODIPINE BESYLATE
     Dosage: 10 MG, 1X/DAY
  15. FOLSYRA EQL PHARMA [Concomitant]
     Dosage: 1 MG, 1X/DAY

REACTIONS (1)
  - Pneumonitis chemical [Not Recovered/Not Resolved]

NARRATIVE: CASE EVENT DATE: 20231213
